FAERS Safety Report 16279261 (Version 3)
Quarter: 2019Q2

REPORT INFORMATION
  Report Type: Spontaneous
  Country: ES (occurrence: ES)
  Receive Date: 20190506
  Receipt Date: 20190612
  Transmission Date: 20190711
  Serious: Yes (Hospitalization)
  Sender: FDA-Public Use
  Company Number: ES-PFIZER INC-2019185132

PATIENT
  Age: 40 Year
  Sex: Female

DRUGS (1)
  1. PALBOCICLIB [Suspect]
     Active Substance: PALBOCICLIB
     Dosage: 125 MG, UNK
     Dates: start: 20181217

REACTIONS (2)
  - Neutropenia [Recovered/Resolved]
  - Carbohydrate antigen 15-3 increased [Recovering/Resolving]

NARRATIVE: CASE EVENT DATE: 2019
